FAERS Safety Report 7673271-6 (Version None)
Quarter: 2011Q3

REPORT INFORMATION
  Report Type: 
  Country: None (occurrence: None)
  Receive Date: 20110810
  Receipt Date: 20110801
  Transmission Date: 20111222
  Serious: Yes (Hospitalization, Other)
  Sender: FDA-Public Use
  Company Number: FR-CEPHALON-2011002791

PATIENT
  Sex: Male
  Weight: 53 kg

DRUGS (10)
  1. TRILEPTAL [Interacting]
     Route: 048
  2. FLOXAL [Concomitant]
     Indication: EYE INFECTION
     Dates: start: 20110225
  3. MODAFINIL [Interacting]
     Route: 048
     Dates: start: 20110519, end: 20110519
  4. MODAFINIL [Suspect]
     Indication: HYPERSOMNIA
     Route: 048
     Dates: start: 20110512, end: 20110513
  5. ETHOSUXIMIDE [Concomitant]
     Indication: EPILEPSY
     Dates: start: 20100901
  6. MODAFINIL [Interacting]
     Route: 048
     Dates: start: 20110520, end: 20110525
  7. ZARONTIN [Interacting]
  8. APYDAN EXTENT [Concomitant]
     Indication: EPILEPSY
     Dates: start: 20100901
  9. MODAFINIL [Interacting]
     Route: 048
     Dates: start: 20110516, end: 20110518
  10. MODAFINIL [Interacting]
     Route: 048
     Dates: start: 20110514, end: 20110515

REACTIONS (5)
  - DRUG INTERACTION [None]
  - DRUG PRESCRIBING ERROR [None]
  - DRUG INEFFECTIVE FOR UNAPPROVED INDICATION [None]
  - EPILEPSY [None]
  - CONVULSION [None]
